FAERS Safety Report 18814129 (Version 2)
Quarter: 2021Q1

REPORT INFORMATION
  Report Type: Spontaneous
  Country: MX (occurrence: MX)
  Receive Date: 20210201
  Receipt Date: 20210315
  Transmission Date: 20210419
  Serious: Yes (Life-Threatening, Other)
  Sender: FDA-Public Use
  Company Number: MX-ASTRAZENECA-2021A010428

PATIENT
  Age: 36 Year
  Sex: Male
  Weight: 75 kg

DRUGS (2)
  1. CALQUENCE [Suspect]
     Active Substance: ACALABRUTINIB
     Indication: COVID-19 PNEUMONIA
     Route: 048
  2. CALQUENCE [Suspect]
     Active Substance: ACALABRUTINIB
     Indication: COVID-19 PNEUMONIA
     Route: 048
     Dates: start: 20201228

REACTIONS (4)
  - Off label use [Unknown]
  - Weight decreased [Unknown]
  - Cardio-respiratory arrest [Unknown]
  - Coma [Unknown]
